FAERS Safety Report 5483290-6 (Version None)
Quarter: 2007Q4

REPORT INFORMATION
  Report Type: 
  Country: None (occurrence: None)
  Receive Date: 20071012
  Receipt Date: 20071003
  Transmission Date: 20080405
  Serious: Yes (Other)
  Sender: FDA-Public Use
  Company Number: PHBS2007JP16574

PATIENT
  Age: 10 Year
  Sex: Male

DRUGS (2)
  1. CICLOSPORIN [Suspect]
     Indication: NEPHROTIC SYNDROME
     Route: 065
  2. PREDNISOLONE [Suspect]
     Indication: NEPHROTIC SYNDROME
     Dosage: 60 MG/DAY
     Route: 065

REACTIONS (1)
  - SUPERIOR SAGITTAL SINUS THROMBOSIS [None]
